FAERS Safety Report 4377440-2 (Version None)
Quarter: 2004Q2

REPORT INFORMATION
  Report Type: 
  Country: None (occurrence: None)
  Receive Date: 20040614
  Receipt Date: 20040614
  Transmission Date: 20050107
  Serious: Yes (Other)
  Sender: FDA-Public Use
  Company Number: None

PATIENT
  Age: 46 Year
  Sex: Male

DRUGS (5)
  1. TENOFOVIR DISOPROXIL [Suspect]
  2. DIDANOSINE [Concomitant]
  3. LAMIVUDINE [Concomitant]
  4. EFAVIRENZ [Concomitant]
  5. RITONAVIR/LOPINAVIR [Concomitant]

REACTIONS (1)
  - FANCONI SYNDROME ACQUIRED [None]
